FAERS Safety Report 8363248-X (Version None)
Quarter: 2012Q2

REPORT INFORMATION
  Report Type: 
  Country: None (occurrence: None)
  Receive Date: 20120516
  Receipt Date: 20111201
  Transmission Date: 20120825
  Serious: No
  Sender: FDA-Public Use
  Company Number: US-ALEXION-A201101821

PATIENT
  Age: 53 Year
  Sex: Male
  Weight: 73.469 kg

DRUGS (10)
  1. CLONIDINE [Concomitant]
     Indication: HYPERTENSION
     Dosage: UNK
     Route: 062
  2. ZOFRAN [Concomitant]
     Indication: NAUSEA
     Dosage: UNK
  3. LOSARTAN POTASSIUM [Concomitant]
     Indication: RENAL DISORDER
     Dosage: UNK
  4. LABETALOL HCL [Concomitant]
     Indication: HYPERTENSION
     Dosage: UNK
  5. AMLODIPINE BESYLATE [Concomitant]
     Indication: HYPERTENSION
     Dosage: UNK
  6. RENVELA [Concomitant]
     Indication: DIALYSIS
     Dosage: UNK
  7. SOLIRIS [Suspect]
     Indication: HAEMOLYTIC URAEMIC SYNDROME
     Dosage: 900 MG, QW
     Route: 042
     Dates: start: 20111110, end: 20111201
  8. DIAZEPAM [Concomitant]
     Dosage: UNK
  9. SOLIRIS [Suspect]
     Dosage: 1200 MG, Q2W
     Route: 042
     Dates: start: 20111208
  10. SOLIRIS [Suspect]
     Dosage: 1200 MG, Q10 DAYS
     Route: 042
     Dates: start: 20120103

REACTIONS (4)
  - DRUG INEFFECTIVE [None]
  - HAEMOLYSIS [None]
  - PROTEIN TOTAL ABNORMAL [None]
  - CONDITION AGGRAVATED [None]
